FAERS Safety Report 24131475 (Version 9)
Quarter: 2025Q3

REPORT INFORMATION
  Report Type: Report from Study
  Country: EU (occurrence: EU)
  Receive Date: 20240724
  Receipt Date: 20250710
  Transmission Date: 20251021
  Serious: Yes (Hospitalization, Other)
  Sender: BRISTOL-MYERS SQUIBB COMPANY
  Company Number: EU-BRISTOL-MYERS SQUIBB COMPANY-2024-114663

PATIENT
  Age: 78 Year
  Sex: Female

DRUGS (30)
  1. OPDIVO [Suspect]
     Active Substance: NIVOLUMAB
     Indication: Non-small cell lung cancer
     Route: 042
     Dates: start: 20220913, end: 20240625
  2. YERVOY [Suspect]
     Active Substance: IPILIMUMAB
     Indication: Non-small cell lung cancer
     Route: 042
     Dates: start: 20220913, end: 20240625
  3. PACLITAXEL [Suspect]
     Active Substance: PACLITAXEL
     Indication: Non-small cell lung cancer
     Dates: start: 20220913, end: 20221018
  4. CARBOPLATIN [Suspect]
     Active Substance: CARBOPLATIN
     Indication: Non-small cell lung cancer
     Route: 042
     Dates: start: 20220913, end: 20221004
  5. APIXABAN [Concomitant]
     Active Substance: APIXABAN
     Indication: Product used for unknown indication
     Dates: start: 20230116
  6. MCP [Concomitant]
     Active Substance: METOCLOPRAMIDE HYDROCHLORIDE
     Indication: Prophylaxis
     Dates: start: 20220913
  7. FILGRASTIM [Concomitant]
     Active Substance: FILGRASTIM
     Indication: Product used for unknown indication
     Dates: start: 20220913
  8. FILGRASTIM [Concomitant]
     Active Substance: FILGRASTIM
     Indication: Non-small cell lung cancer
  9. POLYETHYLENE GLYCOLS [Concomitant]
     Active Substance: POLYETHYLENE GLYCOLS
     Indication: Prophylaxis
     Dates: start: 20220913
  10. METAMIZOL [Concomitant]
     Active Substance: METAMIZOLE SODIUM
     Indication: Product used for unknown indication
     Dates: start: 20220913
  11. HYDROCORTISONE [Concomitant]
     Active Substance: HYDROCORTISONE
     Indication: Prophylaxis
     Dates: start: 20240705
  12. HYDROCORTISONE [Concomitant]
     Active Substance: HYDROCORTISONE
     Dates: start: 20230804
  13. RAMIPRIL [Concomitant]
     Active Substance: RAMIPRIL
     Indication: Product used for unknown indication
     Dates: start: 20020101, end: 20230614
  14. RAMIPRIL [Concomitant]
     Active Substance: RAMIPRIL
     Dates: start: 20230615, end: 20230630
  15. RAMIPRIL [Concomitant]
     Active Substance: RAMIPRIL
     Dates: start: 20230701
  16. DERMATOP [Concomitant]
     Active Substance: PREDNICARBATE
     Indication: Product used for unknown indication
     Dates: start: 20221018, end: 20221025
  17. DERMATOP [Concomitant]
     Active Substance: PREDNICARBATE
     Dates: start: 20230224, end: 20230306
  18. LEVOTHYROXINE SODIUM [Concomitant]
     Active Substance: LEVOTHYROXINE SODIUM
     Indication: Prophylaxis
     Dates: start: 20221122, end: 20230319
  19. LEVOTHYROXINE SODIUM [Concomitant]
     Active Substance: LEVOTHYROXINE SODIUM
     Dates: start: 20230320, end: 20230613
  20. LEVOTHYROXINE SODIUM [Concomitant]
     Active Substance: LEVOTHYROXINE SODIUM
     Dates: start: 20230614, end: 20240402
  21. LEVOTHYROXINE SODIUM [Concomitant]
     Active Substance: LEVOTHYROXINE SODIUM
     Dates: start: 20240403
  22. CHOLECALCIFEROL [Concomitant]
     Active Substance: CHOLECALCIFEROL
     Indication: Prophylaxis
     Dates: start: 20241029
  23. BUDESONIDE [Concomitant]
     Active Substance: BUDESONIDE
     Indication: Prophylaxis
     Dates: start: 20241030
  24. FLUDROCORTISONE [Concomitant]
     Active Substance: FLUDROCORTISONE
     Indication: Prophylaxis
     Dates: start: 20241031
  25. INFLIXIMAB [Concomitant]
     Active Substance: INFLIXIMAB
     Indication: Adverse event
     Dates: start: 20241014
  26. PREDNISOLONE [Concomitant]
     Active Substance: PREDNISOLONE
     Indication: Adverse event
     Dates: start: 20230306, end: 20230320
  27. CHLORAMPHENICOL\HYDROCORTISONE ACETATE [Concomitant]
     Active Substance: CHLORAMPHENICOL\HYDROCORTISONE ACETATE
     Indication: Prophylaxis
     Dates: start: 20230804
  28. HERBALS\PLANTAGO OVATA LEAF [Concomitant]
     Active Substance: HERBALS\PLANTAGO OVATA LEAF
     Indication: Adverse event
     Dates: start: 20240828
  29. AMLODIPINE [Concomitant]
     Active Substance: AMLODIPINE BESYLATE
     Indication: Product used for unknown indication
     Dates: start: 20241102
  30. TAZOBACTAM [Concomitant]
     Active Substance: TAZOBACTAM
     Indication: Adverse event
     Dates: start: 20241030, end: 20241030

REACTIONS (6)
  - Hypovolaemia [Recovered/Resolved]
  - Immune-mediated enterocolitis [Recovered/Resolved]
  - Immune-mediated hypothyroidism [Not Recovered/Not Resolved]
  - Urinary tract infection [Recovered/Resolved]
  - Oedema peripheral [Recovered/Resolved]
  - Escherichia infection [Unknown]

NARRATIVE: CASE EVENT DATE: 20240705
